FAERS Safety Report 9724001 (Version 1)
Quarter: 2013Q4

REPORT INFORMATION
  Report Type: Spontaneous
  Country: DK (occurrence: DK)
  Receive Date: 20131202
  Receipt Date: 20131202
  Transmission Date: 20140711
  Serious: Yes (Other)
  Sender: FDA-Public Use
  Company Number: DK-ACTAVIS-2013-22026

PATIENT
  Age: 74 Year
  Sex: 0
  Weight: 52 kg

DRUGS (2)
  1. PANTOPRAZOLE [Suspect]
     Indication: DYSPEPSIA
     Dosage: 20 MG, UNKNOWN
     Route: 065
  2. PROLIA [Suspect]
     Indication: OSTEOPOROSIS
     Dosage: 60 MG/ML, UNKNOWN
     Route: 065
     Dates: start: 20111206, end: 20121106

REACTIONS (3)
  - Respiration abnormal [Recovered/Resolved]
  - Pyrexia [Recovered/Resolved]
  - Chest discomfort [Recovered/Resolved]
